FAERS Safety Report 9996289 (Version 1)
Quarter: 2014Q1

REPORT INFORMATION
  Report Type: Spontaneous
  Country: CH (occurrence: CH)
  Receive Date: 20140311
  Receipt Date: 20140311
  Transmission Date: 20141002
  Serious: Yes (Death)
  Sender: FDA-Public Use
  Company Number: CH-SA-2014SA025650

PATIENT
  Age: 53 Year
  Sex: Female

DRUGS (10)
  1. LASIX [Suspect]
     Indication: CARDIOVASCULAR DISORDER
     Route: 065
     Dates: start: 201311
  2. AUGMENTIN [Suspect]
     Indication: MULTIPLE INJURIES
     Route: 040
     Dates: start: 20131116, end: 20131128
  3. HALDOL [Suspect]
     Indication: DELIRIUM
     Route: 065
     Dates: start: 201311, end: 201312
  4. SEROQUEL [Suspect]
     Indication: DELIRIUM
     Route: 065
     Dates: start: 201311, end: 201312
  5. INVANZ [Suspect]
     Indication: PRODUCT USED FOR UNKNOWN INDICATION
     Route: 040
     Dates: start: 20131201, end: 20131210
  6. FRAGMIN [Suspect]
     Indication: THROMBOSIS PROPHYLAXIS
     Route: 058
     Dates: start: 20131116
  7. MORPHINE SULFATE [Concomitant]
  8. NOVALGIN [Concomitant]
  9. TEMESTA [Concomitant]
  10. DORMICUM [Concomitant]

REACTIONS (9)
  - Drug reaction with eosinophilia and systemic symptoms [Fatal]
  - Eosinophilic myocarditis [Fatal]
  - Cardiac arrest [Fatal]
  - Hypoxic-ischaemic encephalopathy [Fatal]
  - Brain oedema [Fatal]
  - Eosinophilic pneumonia [Fatal]
  - Alveolitis [Fatal]
  - Allergic hepatitis [Fatal]
  - Bone marrow eosinophilic leukocyte count increased [Fatal]
